FAERS Safety Report 13260967 (Version 2)
Quarter: 2017Q1

REPORT INFORMATION
  Report Type: Spontaneous
  Country: CA (occurrence: CA)
  Receive Date: 20170222
  Receipt Date: 20170303
  Transmission Date: 20170428
  Serious: Yes (Other)
  Sender: FDA-Public Use
  Company Number: CA-PFIZER INC-2017063416

PATIENT
  Age: 49 Year
  Sex: Female

DRUGS (9)
  1. FERROUS GLUCONATE [Concomitant]
     Active Substance: FERROUS GLUCONATE
     Dosage: 9 MG, DAILY
  2. CHOLECALCIFEROL [Concomitant]
     Active Substance: CHOLECALCIFEROL
     Dosage: 2000 IU, DAILY
     Route: 048
  3. XELJANZ [Suspect]
     Active Substance: TOFACITINIB CITRATE
     Indication: RHEUMATOID ARTHRITIS
     Dosage: 5 MG, 2X/DAY
     Route: 048
  4. VITAMIN B12 [Concomitant]
     Active Substance: CYANOCOBALAMIN
     Dosage: 1000 DF, DAILY (1000 MCG DAILY)
     Route: 060
  5. CELEBREX [Concomitant]
     Active Substance: CELECOXIB
     Dosage: 100 MG, 2X/DAY
     Route: 048
  6. FOLIC ACID. [Concomitant]
     Active Substance: FOLIC ACID
     Dosage: 1 MG, DAILY
     Route: 048
     Dates: start: 201310
  7. GLUCOSAMINE [Concomitant]
     Active Substance: GLUCOSAMINE
     Dosage: 62.5 MG, DAILY
     Route: 048
  8. AXERT [Concomitant]
     Active Substance: ALMOTRIPTAN MALATE
     Dosage: 12.5 MG, AS NEEDED
     Route: 048
  9. MULTIVITAMINUM [Concomitant]
     Dosage: UNK
     Route: 048

REACTIONS (3)
  - Nasopharyngitis [Unknown]
  - Lower respiratory tract infection [Recovered/Resolved]
  - Dizziness [Unknown]
